FAERS Safety Report 7760778-6 (Version None)
Quarter: 2011Q3

REPORT INFORMATION
  Report Type: 
  Country: None (occurrence: None)
  Receive Date: 20110919
  Receipt Date: 20101013
  Transmission Date: 20111222
  Serious: No
  Sender: FDA-Public Use
  Company Number: US-MUTUAL PHARMACEUTICAL COMPANY, INC.-2010P1002003

PATIENT
  Age: 53 Year
  Sex: Female

DRUGS (1)
  1. CLONIDINE HCL [Suspect]
     Route: 048

REACTIONS (3)
  - SWOLLEN TONGUE [None]
  - DYSPNOEA [None]
  - VOMITING [None]
